FAERS Safety Report 22976790 (Version 2)
Quarter: 2023Q4

REPORT INFORMATION
  Report Type: Spontaneous
  Country: IT (occurrence: IT)
  Receive Date: 20230925
  Receipt Date: 20231011
  Transmission Date: 20240110
  Serious: Yes (Hospitalization)
  Sender: FDA-Public Use
  Company Number: None

PATIENT
  Age: 7 Year
  Sex: Male
  Weight: 32 kg

DRUGS (1)
  1. TRAMETINIB [Suspect]
     Active Substance: TRAMETINIB
     Indication: Astrocytoma, low grade
     Dosage: 0.38 MG, QD (1 VOLTA AL GIORNO, DOSE DI 0,375 MG)
     Route: 048
     Dates: start: 20220829, end: 20230909

REACTIONS (2)
  - Haematuria [Unknown]
  - Blood creatine phosphokinase increased [Unknown]

NARRATIVE: CASE EVENT DATE: 20230909
